FAERS Safety Report 4302581-5 (Version None)
Quarter: 2004Q1

REPORT INFORMATION
  Report Type: 
  Country: None (occurrence: None)
  Receive Date: 20040220
  Receipt Date: 20040211
  Transmission Date: 20041129
  Serious: Yes (Other)
  Sender: FDA-Public Use
  Company Number: GBWYE583416FEB04

PATIENT
  Age: 64 Year
  Sex: Female

DRUGS (3)
  1. ADVIL [Suspect]
     Indication: JOINT STIFFNESS
     Dosage: 400 MG 3X PER 1 DAY, ORAL
     Route: 048
  2. CHLORPROMAZINE [Suspect]
     Indication: MANIA
     Dosage: 300 MG 1X PER 1 DAY, ORAL
     Route: 048
  3. LITHIUM (LITHIUM, 0) [Suspect]
     Indication: MANIA
     Dosage: 600 MG 2X PER 1 DAY, ORAL
     Route: 048

REACTIONS (4)
  - BLOOD CREATININE INCREASED [None]
  - BLOOD UREA INCREASED [None]
  - DRUG LEVEL INCREASED [None]
  - DRUG TOXICITY [None]
